FAERS Safety Report 5886806-0 (Version None)
Quarter: 2008Q3

REPORT INFORMATION
  Report Type: 
  Country: None (occurrence: None)
  Receive Date: 20080917
  Receipt Date: 20080912
  Transmission Date: 20090109
  Serious: Yes (Hospitalization)
  Sender: FDA-Public Use
  Company Number: CH-ABBOTT-08P-151-0476134-00

PATIENT
  Age: 59 Year
  Sex: Male

DRUGS (7)
  1. DEPAKENE [Suspect]
     Indication: DRUG USE FOR UNKNOWN INDICATION
     Route: 048
     Dates: start: 20080627, end: 20080629
  2. DEPAKENE [Suspect]
     Route: 048
     Dates: start: 20080630
  3. OLANZAPINE [Suspect]
     Indication: DRUG USE FOR UNKNOWN INDICATION
     Route: 048
     Dates: start: 19990101, end: 20080812
  4. OLANZAPINE [Suspect]
     Route: 048
     Dates: start: 20080813
  5. LITHIUM CARBONATE [Concomitant]
     Indication: DRUG USE FOR UNKNOWN INDICATION
     Dosage: 1125-1608 MG DAILY
     Route: 048
     Dates: start: 19940101
  6. PIOGLITAZONE [Concomitant]
     Indication: DIABETES MELLITUS
     Route: 048
     Dates: start: 20030101
  7. METFORMIN HCL [Concomitant]
     Indication: DIABETES MELLITUS
     Route: 048
     Dates: start: 20030101

REACTIONS (2)
  - HEPATOCELLULAR INJURY [None]
  - LIVER FUNCTION TEST ABNORMAL [None]
